FAERS Safety Report 4376688-0 (Version None)
Quarter: 2004Q2

REPORT INFORMATION
  Report Type: 
  Country: None (occurrence: None)
  Receive Date: 20040608
  Receipt Date: 20040526
  Transmission Date: 20050107
  Serious: Yes (Disabling)
  Sender: FDA-Public Use
  Company Number: 04P-163-0262053-00

PATIENT
  Age: 83 Year
  Sex: Female
  Weight: 52.1637 kg

DRUGS (9)
  1. HUMIRA [Suspect]
     Indication: RHEUMATOID ARTHRITIS
     Dosage: 40 MG, 1 IN 2 WK, SUBCUTANEOUS
     Route: 058
     Dates: start: 20031001, end: 20040524
  2. PREDNISONE [Concomitant]
  3. AMLODIPINE BESYLATE [Concomitant]
  4. GLIMEPIRIDE [Concomitant]
  5. OMEPRAZOLE [Concomitant]
  6. PROPACET 100 [Concomitant]
  7. MULTI-VITAMINS [Concomitant]
  8. ARTHROTEC [Concomitant]
  9. CALCIUM [Concomitant]

REACTIONS (2)
  - BLINDNESS UNILATERAL [None]
  - CHORIORETINAL DISORDER [None]
